FAERS Safety Report 13370583 (Version 1)
Quarter: 2017Q1

REPORT INFORMATION
  Report Type: Spontaneous
  Country: BG (occurrence: BG)
  Receive Date: 20170324
  Receipt Date: 20170324
  Transmission Date: 20170429
  Serious: Yes (Other)
  Sender: FDA-Public Use
  Company Number: BG-BAYER-2017-053038

PATIENT
  Age: 57 Year
  Sex: Female

DRUGS (1)
  1. NEXAVAR [Suspect]
     Active Substance: SORAFENIB
     Indication: CLEAR CELL RENAL CELL CARCINOMA
     Dosage: 800 MG, QD
     Route: 048
     Dates: start: 201411

REACTIONS (7)
  - Renal cell carcinoma [None]
  - Rash [Recovered/Resolved]
  - Pancreatic carcinoma [None]
  - Lymphadenopathy mediastinal [None]
  - Asthenia [Recovered/Resolved]
  - Nausea [Recovered/Resolved]
  - Lung disorder [None]

NARRATIVE: CASE EVENT DATE: 20170316
